FAERS Safety Report 23548131 (Version 2)
Quarter: 2024Q1

REPORT INFORMATION
  Report Type: Spontaneous
  Country: CN (occurrence: CN)
  Receive Date: 20240221
  Receipt Date: 20240223
  Transmission Date: 20240409
  Serious: Yes (Hospitalization)
  Sender: FDA-Public Use
  Company Number: CN-002147023-NVSC2024CN035752

PATIENT
  Age: 73 Year
  Sex: Female
  Weight: 63 kg

DRUGS (1)
  1. SACUBITRIL\VALSARTAN [Suspect]
     Active Substance: SACUBITRIL\VALSARTAN
     Indication: Blood pressure increased
     Dosage: 100 MG, TID
     Route: 048
     Dates: start: 20231227, end: 20240201

REACTIONS (6)
  - Hyperkalaemia [Recovered/Resolved]
  - Acute kidney injury [Recovering/Resolving]
  - Renal failure [Unknown]
  - Blood pressure abnormal [Unknown]
  - Respiratory rate increased [Unknown]
  - Cyanosis [Unknown]

NARRATIVE: CASE EVENT DATE: 20240201
